FAERS Safety Report 11079927 (Version 10)
Quarter: 2015Q4

REPORT INFORMATION
  Report Type: Report from Study
  Country: US (occurrence: US)
  Receive Date: 20150430
  Receipt Date: 20151001
  Transmission Date: 20160304
  Serious: Yes (Life-Threatening, Hospitalization, Other)
  Sender: FDA-Public Use
  Company Number: US-ASTRAZENECA-2015SE40169

PATIENT
  Age: 22484 Day
  Sex: Male

DRUGS (15)
  1. DAPAGLIFLOZIN [Suspect]
     Active Substance: DAPAGLIFLOZIN
     Indication: TYPE 2 DIABETES MELLITUS
     Route: 048
     Dates: start: 20130911, end: 20150225
  2. SPIRONOLACTONE. [Concomitant]
     Active Substance: SPIRONOLACTONE
     Indication: CORONARY ARTERY DISEASE
     Route: 048
  3. FENOBIBRATE [Concomitant]
     Indication: BLOOD CHOLESTEROL
     Route: 048
  4. VITAMIN D3 [Concomitant]
     Active Substance: CHOLECALCIFEROL
     Indication: VITAMIN D DEFICIENCY
     Route: 048
  5. CLOPIDOGREL [Concomitant]
     Active Substance: CLOPIDOGREL BISULFATE
     Indication: CORONARY ARTERY DISEASE
     Route: 048
  6. NOVOLIN [Concomitant]
     Active Substance: INSULIN HUMAN
     Indication: DIABETES MELLITUS
     Route: 058
  7. ASPIRIN. [Concomitant]
     Active Substance: ASPIRIN
     Indication: CORONARY ARTERY DISEASE
     Route: 048
  8. COQ10 [Concomitant]
     Active Substance: UBIDECARENONE
     Indication: NUTRITIONAL SUPPLEMENTATION
     Route: 048
  9. COREG [Concomitant]
     Active Substance: CARVEDILOL
     Indication: CORONARY ARTERY DISEASE
     Route: 048
  10. LISINOPRIL. [Concomitant]
     Active Substance: LISINOPRIL
     Indication: HYPERTENSION
     Route: 048
  11. SYNTHROIS [Concomitant]
     Indication: THYROID DISORDER
     Route: 048
  12. LANTUS [Concomitant]
     Active Substance: INSULIN GLARGINE
     Indication: DIABETES MELLITUS
     Route: 058
  13. BUMETANIDE. [Concomitant]
     Active Substance: BUMETANIDE
     Indication: CORONARY ARTERY DISEASE
     Route: 048
  14. MULTIVITAMIN [Concomitant]
     Active Substance: VITAMINS
     Indication: NUTRITIONAL SUPPLEMENTATION
     Route: 048
  15. ATORVASTATIN [Concomitant]
     Active Substance: ATORVASTATIN
     Route: 048

REACTIONS (5)
  - Pneumonia [Recovered/Resolved]
  - Clostridium difficile colitis [Recovered/Resolved]
  - Septic shock [Recovered/Resolved]
  - Haemothorax [Recovered/Resolved]
  - Acute kidney injury [Recovering/Resolving]

NARRATIVE: CASE EVENT DATE: 20150322
